FAERS Safety Report 10251894 (Version 1)
Quarter: 2014Q2

REPORT INFORMATION
  Report Type: Spontaneous
  Country: GB (occurrence: None)
  Receive Date: 20140619
  Receipt Date: 20140619
  Transmission Date: 20141212
  Serious: Yes (Death, Hospitalization)
  Sender: FDA-Public Use
  Company Number: 1401087

PATIENT
  Age: 70 Year
  Sex: Female

DRUGS (1)
  1. TAMOXIFEN (NON-SPECIFIC) [Suspect]
     Indication: BREAST CANCER

REACTIONS (7)
  - Leiomyosarcoma [None]
  - Haemorrhage [None]
  - Sepsis [None]
  - Metastases to lung [None]
  - Bladder cancer [None]
  - Metastases to peritoneum [None]
  - General physical health deterioration [None]
